FAERS Safety Report 6305381-X (Version None)
Quarter: 2009Q3

REPORT INFORMATION
  Report Type: 
  Country: None (occurrence: None)
  Receive Date: 20090811
  Receipt Date: 20090803
  Transmission Date: 20100115
  Serious: Yes (Other)
  Sender: FDA-Public Use
  Company Number: GB-AMGEN-STX358646

PATIENT
  Age: 84 Year
  Sex: Male
  Weight: 64 kg

DRUGS (5)
  1. MIMPARA [Suspect]
     Indication: HYPERPARATHYROIDISM SECONDARY
     Route: 048
     Dates: start: 20090610
  2. CARBAMAZEPINE [Concomitant]
     Route: 048
     Dates: start: 20080402
  3. EPREX [Concomitant]
     Route: 042
     Dates: start: 20081007
  4. TINZAPARIN SODIUM [Concomitant]
     Route: 042
     Dates: start: 20090512
  5. VENOFER [Concomitant]
     Route: 042
     Dates: start: 20080319

REACTIONS (2)
  - CONVULSION [None]
  - MUSCLE SPASMS [None]
